FAERS Safety Report 4686376-9 (Version None)
Quarter: 2005Q2

REPORT INFORMATION
  Report Type: 
  Country: None (occurrence: None)
  Receive Date: 20050606
  Receipt Date: 20050525
  Transmission Date: 20051028
  Serious: Yes (Hospitalization)
  Sender: FDA-Public Use
  Company Number: 2005079340

PATIENT
  Age: 71 Year
  Sex: Male

DRUGS (6)
  1. ATARAX [Suspect]
     Indication: ILL-DEFINED DISORDER
     Dosage: 25 MG ORAL
     Route: 048
     Dates: start: 20050115
  2. PREDNISOLONE [Suspect]
     Indication: ILL-DEFINED DISORDER
     Dosage: 20 MG ORAL
     Route: 048
     Dates: start: 20050119
  3. OFLOXACIN [Suspect]
     Indication: ILL-DEFINED DISORDER
     Dosage: 400 MG ORAL
     Route: 048
     Dates: start: 20050112, end: 20050309
  4. RIFAMPICIN [Suspect]
     Indication: ILL-DEFINED DISORDER
     Dosage: 600 MG ORAL
     Route: 048
     Dates: start: 20050112, end: 20050426
  5. INEXIUM (ESOMEPRAZOLE MAGNESIUM) [Suspect]
     Indication: ILL-DEFINED DISORDER
     Dosage: 40 MG ORAL
     Route: 048
     Dates: start: 20050119, end: 20050205
  6. OROCAL VITAMIN D (CALCIUM CARBONATE, COLECALCIFEROL) [Suspect]
     Indication: ILL-DEFINED DISORDER
     Dosage: ORAL
     Route: 048
     Dates: start: 20050115

REACTIONS (3)
  - ANAEMIA [None]
  - BLOOD BILIRUBIN INCREASED [None]
  - JAUNDICE [None]
